FAERS Safety Report 7482336-3 (Version None)
Quarter: 2011Q2

REPORT INFORMATION
  Report Type: 
  Country: None (occurrence: None)
  Receive Date: 20110516
  Receipt Date: 20110513
  Transmission Date: 20111010
  Serious: No
  Sender: FDA-Public Use
  Company Number: US-PFIZER INC-2010163366

PATIENT
  Sex: Male

DRUGS (1)
  1. CHANTIX [Suspect]
     Dosage: 1MG
     Route: 048

REACTIONS (3)
  - MALAISE [None]
  - NAUSEA [None]
  - DRUG DISPENSING ERROR [None]
